FAERS Safety Report 20774948 (Version 1)
Quarter: 2022Q2

REPORT INFORMATION
  Report Type: Spontaneous
  Country: IT (occurrence: IT)
  Receive Date: 20220502
  Receipt Date: 20220502
  Transmission Date: 20220720
  Serious: Yes (Hospitalization, Other)
  Sender: FDA-Public Use
  Company Number: IT-ELI_LILLY_AND_COMPANY-IT202204010490

PATIENT
  Age: 72 Year
  Sex: Male

DRUGS (1)
  1. SELPERCATINIB [Suspect]
     Active Substance: SELPERCATINIB
     Indication: Lung adenocarcinoma
     Dosage: 160 MG, BID
     Route: 065
     Dates: start: 202106

REACTIONS (7)
  - COVID-19 [Recovered/Resolved]
  - Interstitial lung disease [Recovered/Resolved]
  - Lymphopenia [Unknown]
  - Aspartate aminotransferase increased [Recovered/Resolved]
  - Alanine aminotransferase increased [Recovered/Resolved]
  - Malignant neoplasm progression [Unknown]
  - Dry mouth [Unknown]

NARRATIVE: CASE EVENT DATE: 20211201
